FAERS Safety Report 13647169 (Version 1)
Quarter: 2017Q2

REPORT INFORMATION
  Report Type: Spontaneous
  Country: US (occurrence: US)
  Receive Date: 20170613
  Receipt Date: 20170613
  Transmission Date: 20170830
  Serious: No
  Sender: FDA-Public Use
  Company Number: US-BAYER-2017-109880

PATIENT
  Sex: Female

DRUGS (1)
  1. MIRALAX [Suspect]
     Active Substance: POLYETHYLENE GLYCOL 3350
     Dosage: UNK

REACTIONS (5)
  - Intentional product use issue [Unknown]
  - Therapeutic response unexpected [Unknown]
  - Abnormal faeces [Unknown]
  - Anal incontinence [Unknown]
  - Diarrhoea [Unknown]
